FAERS Safety Report 6416466-1 (Version None)
Quarter: 2009Q4

REPORT INFORMATION
  Report Type: 
  Country: None (occurrence: None)
  Receive Date: 20091027
  Receipt Date: 20091020
  Transmission Date: 20100525
  Serious: No
  Sender: FDA-Public Use
  Company Number: US-B.I. PHARMACEUTICALS,INC./RIDGEFIELD-2009-BP-11045BP

PATIENT
  Sex: Male

DRUGS (7)
  1. FLOMAX [Suspect]
     Indication: DYSURIA
     Dosage: 0.4 MG
     Route: 048
     Dates: start: 20090101, end: 20090901
  2. FLOMAX [Suspect]
     Indication: BENIGN PROSTATIC HYPERPLASIA
  3. FLOMAX [Suspect]
     Indication: URINE FLOW DECREASED
  4. TOPROL-XL [Concomitant]
     Dates: start: 20090601
  5. ALLOPURINOL [Concomitant]
     Dates: start: 20090201
  6. FUROSEMIDE [Concomitant]
     Dates: start: 20090201
  7. TRAMADOL HCL [Concomitant]
     Dates: start: 20081201

REACTIONS (3)
  - DRUG INEFFECTIVE [None]
  - URINARY RETENTION [None]
  - URINE OUTPUT DECREASED [None]
